FAERS Safety Report 11498351 (Version 1)
Quarter: 2015Q3

REPORT INFORMATION
  Report Type: Spontaneous
  Country: US (occurrence: US)
  Receive Date: 20150911
  Receipt Date: 20150911
  Transmission Date: 20151125
  Serious: No
  Sender: FDA-Public Use
  Company Number: US-009507513-1509USA005515

PATIENT
  Age: 10 Year
  Sex: Male

DRUGS (6)
  1. FEXOFENADINE HYDROCHLORIDE. [Suspect]
     Active Substance: FEXOFENADINE HYDROCHLORIDE
     Indication: RHINITIS
  2. IPRATROPIUM BROMIDE (WARRICK) [Suspect]
     Active Substance: IPRATROPIUM BROMIDE
     Indication: RHINITIS
  3. LEVALBUTEROL. [Suspect]
     Active Substance: LEVALBUTEROL
     Indication: RHINITIS
  4. SINGULAIR [Suspect]
     Active Substance: MONTELUKAST SODIUM
     Indication: RHINITIS
     Route: 048
  5. SALMETEROL [Suspect]
     Active Substance: SALMETEROL
     Indication: RHINITIS
  6. PREDNISONE. [Suspect]
     Active Substance: PREDNISONE
     Indication: RHINITIS
     Route: 048

REACTIONS (1)
  - Drug ineffective [Unknown]
